FAERS Safety Report 9266025 (Version 2)
Quarter: 2013Q2

REPORT INFORMATION
  Report Type: Spontaneous
  Country: US (occurrence: US)
  Receive Date: 20130501
  Receipt Date: 20130505
  Transmission Date: 20140414
  Serious: Yes (Hospitalization, Other)
  Sender: FDA-Public Use
  Company Number: US-B.I. PHARMACEUTICALS,INC./RIDGEFIELD-2013-BI-11594BP

PATIENT
  Age: 77 Year
  Sex: Male

DRUGS (13)
  1. SPIRIVA [Suspect]
     Indication: CHRONIC OBSTRUCTIVE PULMONARY DISEASE
     Dosage: 18 MCG
     Route: 055
     Dates: start: 2011
  2. CHEMOTHERAPY [Concomitant]
  3. ADVAIR [Concomitant]
     Route: 055
  4. PROVENTIL HFA [Concomitant]
     Dosage: 8 PUF
  5. FERROUS SULFATE [Concomitant]
     Dosage: 324 MG
     Route: 048
  6. METOPROLOL TARTRATE [Concomitant]
     Dosage: 100 MG
     Route: 048
  7. OMEPRAZOLE [Concomitant]
     Dosage: 40 MG
     Route: 048
  8. TAMSULOSIN HYDROCHLORIDE [Concomitant]
     Dosage: 0.4 MG
     Route: 048
  9. AMLODIPINE BESYLATE [Concomitant]
     Dosage: 10 MG
  10. LISINOPRIL [Concomitant]
     Dosage: 20 MG
     Route: 048
  11. ZOFRAN [Concomitant]
     Indication: NAUSEA
     Route: 048
  12. ASPIRIN [Concomitant]
     Dosage: 324 MG
     Route: 048
  13. SIMVASTATIN [Concomitant]
     Dosage: 40 MG
     Route: 048

REACTIONS (4)
  - Gastric dilatation [Recovered/Resolved]
  - Pneumonia [Recovered/Resolved]
  - Lung neoplasm malignant [Not Recovered/Not Resolved]
  - Diarrhoea [Recovered/Resolved]
